FAERS Safety Report 7370143-1 (Version None)
Quarter: 2011Q1

REPORT INFORMATION
  Report Type: 
  Country: None (occurrence: None)
  Receive Date: 20110323
  Receipt Date: 20110310
  Transmission Date: 20110831
  Serious: Yes (Other)
  Sender: FDA-Public Use
  Company Number: PHHY2011BR09258

PATIENT
  Sex: Female
  Weight: 80 kg

DRUGS (3)
  1. DIOVAN AMLO FIX [Suspect]
     Indication: HYPERTENSION
     Dosage: 1 DF, DAILY
     Route: 048
     Dates: end: 20110304
  2. ANTIBIOTICS [Concomitant]
     Indication: PHARYNGITIS
     Route: 048
  3. DIOVAN AMLO FIX [Suspect]
     Dosage: UNK
     Dates: start: 20110310

REACTIONS (13)
  - BLOOD PRESSURE SYSTOLIC INCREASED [None]
  - HEADACHE [None]
  - TACHYCARDIA [None]
  - DIZZINESS [None]
  - PHARYNGITIS [None]
  - NERVOUSNESS [None]
  - URINARY INCONTINENCE [None]
  - COLD SWEAT [None]
  - HYPERTENSION [None]
  - TREMOR [None]
  - NECK PAIN [None]
  - MALAISE [None]
  - ANXIETY [None]
